FAERS Safety Report 7110271-9 (Version None)
Quarter: 2010Q4

REPORT INFORMATION
  Report Type: 
  Country: None (occurrence: None)
  Receive Date: 20101112
  Receipt Date: 20101027
  Transmission Date: 20110411
  Serious: Yes (Hospitalization, Other)
  Sender: FDA-Public Use
  Company Number: 1-15505026

PATIENT
  Age: 49 Year
  Sex: Female
  Weight: 126.5536 kg

DRUGS (8)
  1. QUININE SULFATE [Suspect]
     Indication: MUSCLE SPASMS
     Dosage: 324 MG, DAILY AS NEEDED, ORAL
     Route: 048
     Dates: start: 20050729, end: 20051025
  2. PREDNISONE [Concomitant]
  3. DIOVAN [Concomitant]
  4. ADVAIR DISKUS 100/50 [Concomitant]
  5. NEXIUM [Concomitant]
  6. BENICAR [Concomitant]
  7. WELLBUTRIN [Concomitant]
  8. LEVOTHYROXINE [Concomitant]

REACTIONS (11)
  - BLOOD CHOLESTEROL INCREASED [None]
  - BLOOD TRIGLYCERIDES INCREASED [None]
  - CHEST PAIN [None]
  - CONTUSION [None]
  - DRUG HYPERSENSITIVITY [None]
  - EMOTIONAL DISTRESS [None]
  - KNEE ARTHROPLASTY [None]
  - LEUKOCYTOSIS [None]
  - PAIN [None]
  - THROMBOCYTOPENIA [None]
  - UNEVALUABLE EVENT [None]
